FAERS Safety Report 13581401 (Version 1)
Quarter: 2017Q2

REPORT INFORMATION
  Report Type: Report from Study
  Country: AT (occurrence: AT)
  Receive Date: 20170525
  Receipt Date: 20170525
  Transmission Date: 20170830
  Serious: Yes (Death, Hospitalization)
  Sender: FDA-Public Use
  Company Number: AT-ROCHE-1935466

PATIENT
  Age: 51 Year
  Sex: Male
  Weight: 71.8 kg

DRUGS (5)
  1. ATEZOLIZUMAB [Suspect]
     Active Substance: ATEZOLIZUMAB
     Indication: LUNG ADENOCARCINOMA
     Route: 042
     Dates: start: 20170317, end: 20170413
  2. FRAGMIN [Concomitant]
     Active Substance: DALTEPARIN SODIUM
     Route: 058
     Dates: end: 20170511
  3. IMPORTAL [Concomitant]
     Active Substance: LACTITOL
     Indication: CONSTIPATION PROPHYLAXIS
     Dosage: 1-0-0
     Route: 048
  4. PANTOLOC [Concomitant]
     Active Substance: PANTOPRAZOLE SODIUM
     Indication: PROPHYLAXIS
     Route: 048
     Dates: end: 20170511
  5. IVADAL [Concomitant]
     Active Substance: ZOLPIDEM TARTRATE
     Indication: INSOMNIA
     Dosage: 0-0-0-1
     Route: 048
     Dates: end: 20170511

REACTIONS (12)
  - Oedema peripheral [Unknown]
  - Hypokalaemia [Unknown]
  - Pleural effusion [Unknown]
  - Subcutaneous emphysema [Unknown]
  - Decreased appetite [Unknown]
  - Sleep disorder [Unknown]
  - Bronchial obstruction [Unknown]
  - Neoplasm progression [Fatal]
  - Pain [Unknown]
  - Atelectasis [Unknown]
  - Bronchopleural fistula [Unknown]
  - Bronchial secretion retention [Unknown]

NARRATIVE: CASE EVENT DATE: 201704
